FAERS Safety Report 10548309 (Version 1)
Quarter: 2014Q4

REPORT INFORMATION
  Report Type: Spontaneous
  Country: US (occurrence: None)
  Receive Date: 20141027
  Receipt Date: 20141027
  Transmission Date: 20150529
  Serious: Yes (Disabling)
  Sender: FDA-Public Use
  Company Number: None

PATIENT
  Age: 45 Year
  Sex: Female
  Weight: 56.7 kg

DRUGS (1)
  1. LEVOFLOXACIN. [Suspect]
     Active Substance: LEVOFLOXACIN
     Indication: SINUSITIS
     Route: 048
     Dates: start: 20141023, end: 20141023

REACTIONS (5)
  - Drug ineffective [None]
  - Myalgia [None]
  - Arthralgia [None]
  - Heart rate increased [None]
  - Pain in extremity [None]

NARRATIVE: CASE EVENT DATE: 20141023
